FAERS Safety Report 24671911 (Version 1)
Quarter: 2024Q4

REPORT INFORMATION
  Report Type: Spontaneous
  Country: DE (occurrence: DE)
  Receive Date: 20241127
  Receipt Date: 20241127
  Transmission Date: 20250115
  Serious: Yes (Other)
  Sender: ELI LILLY AND COMPANY
  Company Number: DE-ELI_LILLY_AND_COMPANY-DE202411013748

PATIENT
  Age: 62 Year
  Sex: Female

DRUGS (3)
  1. ABEMACICLIB [Suspect]
     Active Substance: ABEMACICLIB
     Indication: Neoplasm
     Dosage: 150 MG, UNKNOWN
     Route: 048
     Dates: start: 20241103
  2. LEUPROLIDE ACETATE [Concomitant]
     Active Substance: LEUPROLIDE ACETATE
     Indication: Product used for unknown indication
  3. DENOSUMAB [Concomitant]
     Active Substance: DENOSUMAB
     Indication: Product used for unknown indication
     Dosage: 1 DOSAGE FORM, MONTHLY (1/M)

REACTIONS (9)
  - Extrasystoles [Not Recovered/Not Resolved]
  - Heart rate increased [Not Recovered/Not Resolved]
  - Influenza like illness [Recovered/Resolved]
  - Feeling cold [Not Recovered/Not Resolved]
  - Night sweats [Not Recovered/Not Resolved]
  - Depression [Not Recovered/Not Resolved]
  - Disturbance in attention [Not Recovered/Not Resolved]
  - Cough [Recovered/Resolved]
  - Listless [Not Recovered/Not Resolved]

NARRATIVE: CASE EVENT DATE: 20241101
